FAERS Safety Report 24143278 (Version 1)
Quarter: 2024Q3

REPORT INFORMATION
  Report Type: Spontaneous
  Country: ES (occurrence: ES)
  Receive Date: 20240726
  Receipt Date: 20240726
  Transmission Date: 20241016
  Serious: No
  Sender: BLUEPRINT MEDICINES
  Company Number: None

PATIENT
  Age: 52 Year
  Sex: Male

DRUGS (8)
  1. AVAPRITINIB [Suspect]
     Active Substance: AVAPRITINIB
     Indication: Advanced systemic mastocytosis
     Route: 048
     Dates: start: 20240402
  2. CALCIFEDIOL [Concomitant]
     Active Substance: CALCIFEDIOL
     Indication: Product used for unknown indication
     Dosage: 0.266 MG C/21 DAYS
     Route: 065
     Dates: start: 20240110
  3. LOSARTAN/HIDROCLOROTIAZIDA TECNIGEN [Concomitant]
     Indication: Essential hypertension
     Dosage: 100 MG PER 12.5 MG
     Route: 048
     Dates: start: 20230208
  4. CLOPIDOGREL BESILATE [Concomitant]
     Active Substance: CLOPIDOGREL BESILATE
     Indication: Polycythaemia vera
     Route: 048
     Dates: start: 20230304
  5. HYDREA [Concomitant]
     Active Substance: HYDROXYUREA
     Indication: Polycythaemia vera
     Route: 048
     Dates: start: 20230325
  6. CROMOGLICATO SODIO [Concomitant]
     Indication: Product used for unknown indication
     Route: 048
     Dates: start: 20231024
  7. OMEPRAZOLE [Concomitant]
     Active Substance: OMEPRAZOLE
     Indication: Polycythaemia vera
     Route: 048
     Dates: start: 20230524
  8. LERCANIDIPINO CINFA [Concomitant]
     Indication: Essential hypertension
     Route: 048
     Dates: start: 20230207

REACTIONS (1)
  - Hypophosphataemia [Recovering/Resolving]

NARRATIVE: CASE EVENT DATE: 20240409
